FAERS Safety Report 5556961-0 (Version None)
Quarter: 2007Q4

REPORT INFORMATION
  Report Type: 
  Country: None (occurrence: None)
  Receive Date: 20071211
  Receipt Date: 20071211
  Transmission Date: 20080405
  Serious: Yes (Other)
  Sender: FDA-Public Use
  Company Number: None

PATIENT
  Sex: Male
  Weight: 88.4514 kg

DRUGS (2)
  1. LEVAQUIN [Suspect]
     Indication: LABYRINTHITIS
     Dosage: 1 TABLET PER DAY 10 DAYS SQ
     Route: 058
     Dates: start: 20070124, end: 20070203
  2. LEVAQUIN [Suspect]
     Indication: SINUSITIS
     Dosage: 1 TABLET PER DAY 10 DAYS SQ
     Route: 058
     Dates: start: 20070124, end: 20070203

REACTIONS (1)
  - TENDON RUPTURE [None]
